FAERS Safety Report 17676346 (Version 1)
Quarter: 2020Q2

REPORT INFORMATION
  Report Type: Spontaneous
  Country: GB (occurrence: GB)
  Receive Date: 20200416
  Receipt Date: 20200416
  Transmission Date: 20200714
  Serious: Yes (Other)
  Sender: FDA-Public Use
  Company Number: GB-AUROBINDO-AUR-APL-2020-018577

PATIENT
  Age: 45 Year
  Sex: Female

DRUGS (2)
  1. TRIMETHOPRIM. [Concomitant]
     Active Substance: TRIMETHOPRIM
     Indication: URINARY TRACT INFECTION
     Dosage: UNK
     Route: 065
     Dates: start: 20200323
  2. FLUCONAZOLE. [Suspect]
     Active Substance: FLUCONAZOLE
     Indication: VULVOVAGINAL CANDIDIASIS
     Dosage: 150 MILLIGRAM
     Route: 048
     Dates: start: 20200325

REACTIONS (5)
  - Ocular hyperaemia [Unknown]
  - Stevens-Johnson syndrome [Not Recovered/Not Resolved]
  - Oral mucosa erosion [Unknown]
  - Butterfly rash [Unknown]
  - Angioedema [Unknown]

NARRATIVE: CASE EVENT DATE: 20200325
